FAERS Safety Report 12690441 (Version 1)
Quarter: 2016Q3

REPORT INFORMATION
  Report Type: Report from Study
  Country: US (occurrence: US)
  Receive Date: 20160826
  Receipt Date: 20160826
  Transmission Date: 20161109
  Serious: Yes (Hospitalization, Other)
  Sender: FDA-Public Use
  Company Number: US-CELGENEUS-163-21880-10031583

PATIENT
  Age: 85 Year
  Sex: Female
  Weight: 48.58 kg

DRUGS (5)
  1. DECADRON [Suspect]
     Active Substance: DEXAMETHASONE
     Indication: PLASMA CELL MYELOMA
     Dosage: 2.8571 MILLIGRAM
     Route: 048
     Dates: start: 20091231, end: 20100322
  2. COUMADIN [Concomitant]
     Active Substance: WARFARIN SODIUM
     Route: 065
     Dates: start: 20100223
  3. REVLIMID [Suspect]
     Active Substance: LENALIDOMIDE
     Indication: PLASMA CELL MYELOMA
     Route: 048
     Dates: start: 20100120, end: 20100322
  4. REVLIMID [Suspect]
     Active Substance: LENALIDOMIDE
     Route: 048
     Dates: start: 20100422, end: 20130524
  5. COUMADIN [Concomitant]
     Active Substance: WARFARIN SODIUM
     Indication: PRODUCT USED FOR UNKNOWN INDICATION
     Route: 065
     Dates: start: 20100112

REACTIONS (2)
  - Abscess intestinal [Unknown]
  - Embolism [Recovered/Resolved]

NARRATIVE: CASE EVENT DATE: 20100223
